FAERS Safety Report 24676800 (Version 1)
Quarter: 2024Q4

REPORT INFORMATION
  Report Type: Spontaneous
  Country: GB (occurrence: GB)
  Receive Date: 20241128
  Receipt Date: 20241128
  Transmission Date: 20250115
  Serious: Yes (Other)
  Sender: JOHNSON AND JOHNSON
  Company Number: None

PATIENT
  Age: 5 Year
  Sex: Male
  Weight: 27 kg

DRUGS (1)
  1. ACETAMINOPHEN [Suspect]
     Active Substance: ACETAMINOPHEN
     Indication: Pyrexia
     Dosage: 7.5MG
     Route: 065
     Dates: start: 20241019

REACTIONS (5)
  - Psychomotor hyperactivity [Not Recovered/Not Resolved]
  - Disturbance in attention [Unknown]
  - Speech disorder [Unknown]
  - Restlessness [Unknown]
  - Incorrect dose administered [Unknown]

NARRATIVE: CASE EVENT DATE: 20241019
